FAERS Safety Report 20090503 (Version 2)
Quarter: 2021Q4

REPORT INFORMATION
  Report Type: Report from Study
  Country: DE (occurrence: DE)
  Receive Date: 20211119
  Receipt Date: 20211130
  Transmission Date: 20220303
  Serious: Yes (Hospitalization)
  Sender: FDA-Public Use
  Company Number: DE-CELGENE-DEU-20211104219

PATIENT
  Age: 44 Year
  Sex: Female
  Weight: 88 kg

DRUGS (15)
  1. REVLIMID [Suspect]
     Active Substance: LENALIDOMIDE
     Indication: Plasma cell myeloma
     Dosage: 25 MILLIGRAM
     Route: 048
     Dates: start: 20210826, end: 20211108
  2. CARFILZOMIB [Suspect]
     Active Substance: CARFILZOMIB
     Indication: Plasma cell myeloma
     Dosage: 72 MILLIGRAM
     Route: 041
     Dates: start: 20210826, end: 20211116
  3. DEXAMETHASONE [Suspect]
     Active Substance: DEXAMETHASONE
     Indication: Plasma cell myeloma
     Dosage: 40 MILLIGRAM
     Route: 041
     Dates: start: 20210826, end: 20211105
  4. LEVOTHYROXINE SODIUM [Concomitant]
     Active Substance: LEVOTHYROXINE SODIUM
     Indication: Hyperthermia malignant
     Dosage: 37.5 MICROGRAM
     Route: 048
     Dates: start: 2017
  5. AMLODIPINE BESYLATE [Concomitant]
     Active Substance: AMLODIPINE BESYLATE
     Indication: Hyperthermia malignant
     Dosage: 5 MILLIGRAM
     Route: 048
     Dates: start: 201712
  6. RAMIPRIL [Concomitant]
     Active Substance: RAMIPRIL
     Indication: Hyperthermia malignant
     Dosage: 5 MILLIGRAM
     Route: 048
     Dates: start: 201712
  7. ACYCLOVIR [Concomitant]
     Active Substance: ACYCLOVIR
     Indication: Prophylaxis
     Dosage: 800 MILLIGRAM
     Route: 048
     Dates: start: 20210826
  8. ASPIRIN [Concomitant]
     Active Substance: ASPIRIN
     Indication: Prophylaxis
     Dosage: 100 MILLIGRAM
     Route: 041
     Dates: start: 20210826
  9. SULFAMETHOXAZOLE\TRIMETHOPRIM [Concomitant]
     Active Substance: SULFAMETHOXAZOLE\TRIMETHOPRIM
     Indication: Prophylaxis
     Dosage: 1920 MILLIGRAM
     Route: 048
     Dates: start: 20210828
  10. AMPHOTERICIN B [Concomitant]
     Active Substance: AMPHOTERICIN B
     Indication: Prophylaxis
     Dosage: AS REQUIRED
     Route: 048
     Dates: start: 20210902
  11. ENOXAPARIN [Concomitant]
     Active Substance: ENOXAPARIN
     Indication: Thrombosis
     Dosage: .8 MILLILITER
     Route: 058
     Dates: start: 20211110, end: 20211111
  12. MEROPENEM [Concomitant]
     Active Substance: MEROPENEM
     Indication: Thrombosis
     Dosage: 1 MILLIGRAM
     Route: 041
     Dates: start: 20211109, end: 20211110
  13. VANCOMYCIN [Concomitant]
     Active Substance: VANCOMYCIN
     Indication: Thrombosis
     Dosage: 1 MILLIGRAM
     Route: 041
     Dates: start: 20211109, end: 20211110
  14. METAMIZOLE [Concomitant]
     Active Substance: METAMIZOLE
     Indication: Thrombosis
     Dosage: 40 DROPS
     Route: 048
     Dates: start: 20211110, end: 20211110
  15. ALTEPLASE [Concomitant]
     Active Substance: ALTEPLASE
     Indication: Thrombosis
     Dosage: 2 MILLIGRAM
     Route: 041
     Dates: start: 20211110, end: 20211110

REACTIONS (1)
  - Catheter site thrombosis [Recovered/Resolved]

NARRATIVE: CASE EVENT DATE: 20211109
